FAERS Safety Report 19085716 (Version 1)
Quarter: 2021Q2

REPORT INFORMATION
  Report Type: Spontaneous
  Country: DE (occurrence: DE)
  Receive Date: 20210402
  Receipt Date: 20210402
  Transmission Date: 20210717
  Serious: Yes (Hospitalization)
  Sender: FDA-Public Use
  Company Number: DE-INDOCO-000141

PATIENT
  Age: 62 Year
  Sex: Female
  Weight: 65 kg

DRUGS (7)
  1. LEVOTHYROXINE. [Interacting]
     Active Substance: LEVOTHYROXINE
     Indication: HYPOTHYROIDISM
  2. RASAGILINE. [Suspect]
     Active Substance: RASAGILINE
     Indication: PARKINSON^S DISEASE
  3. RANOLAZINE/RANOLAZINE HYDROCHLORIDE [Interacting]
     Active Substance: RANOLAZINE HYDROCHLORIDE
     Indication: HYPERTENSION
  4. BENSERAZIDE/LEVODOPA [Interacting]
     Active Substance: BENSERAZIDE\LEVODOPA
     Indication: PARKINSON^S DISEASE
     Dosage: 200+50 MG/DAY
  5. MOCLOBEMIDE [Interacting]
     Active Substance: MOCLOBEMIDE
     Indication: PARKINSON^S DISEASE
     Dosage: INCREASED FROM 150 MG/DAY
  6. AGOMELATINE [Interacting]
     Active Substance: AGOMELATINE
     Indication: PARKINSON^S DISEASE
  7. PRAMIPEXOLE/PRAMIPEXOLE DIHYDROCHLORIDE [Interacting]
     Active Substance: PRAMIPEXOLE DIHYDROCHLORIDE
     Indication: PARKINSON^S DISEASE

REACTIONS (2)
  - Serum serotonin increased [Recovering/Resolving]
  - Drug interaction [Unknown]
